FAERS Safety Report 25724125 (Version 1)
Quarter: 2025Q3

REPORT INFORMATION
  Report Type: Report from Study
  Country: US (occurrence: US)
  Receive Date: 20250826
  Receipt Date: 20250826
  Transmission Date: 20251021
  Serious: Yes (Death)
  Sender: ROCHE
  Company Number: US-ROCHE-10000372380

PATIENT
  Age: 87 Year
  Sex: Male

DRUGS (3)
  1. ACTEMRA [Suspect]
     Active Substance: TOCILIZUMAB
     Indication: Brain neoplasm malignant
     Dosage: INFUSE 200MG INTRAVENOUSLY EVERY 28 DAY(S)
     Route: 042
  2. ACTEMRA [Suspect]
     Active Substance: TOCILIZUMAB
     Indication: Malignant melanoma
  3. ACTEMRA [Suspect]
     Active Substance: TOCILIZUMAB
     Indication: Metastases to central nervous system

REACTIONS (2)
  - Death [Fatal]
  - Off label use [Unknown]

NARRATIVE: CASE EVENT DATE: 20250611
